FAERS Safety Report 6447805-3 (Version None)
Quarter: 2009Q4

REPORT INFORMATION
  Report Type: 
  Country: None (occurrence: None)
  Receive Date: 20091120
  Receipt Date: 20091001
  Transmission Date: 20100525
  Serious: No
  Sender: FDA-Public Use
  Company Number: A0800112A

PATIENT
  Age: 2 Year
  Sex: Male

DRUGS (2)
  1. VERAMYST [Suspect]
     Indication: DRUG USE FOR UNKNOWN INDICATION
     Dosage: 1SPR PER DAY
     Route: 045
     Dates: start: 20090331
  2. SINGULAIR [Concomitant]

REACTIONS (2)
  - NASAL DISCOMFORT [None]
  - PRODUCT QUALITY ISSUE [None]
